FAERS Safety Report 11117415 (Version 2)
Quarter: 2015Q2

REPORT INFORMATION
  Report Type: Spontaneous
  Country: US (occurrence: US)
  Receive Date: 20150516
  Receipt Date: 20150611
  Transmission Date: 20150821
  Serious: Yes (Hospitalization, Other)
  Sender: FDA-Public Use
  Company Number: US-AUROBINDO-AUR-APL-2015-04282

PATIENT
  Age: 77 Year
  Sex: Male

DRUGS (1)
  1. NAFCILLIN [Suspect]
     Active Substance: NAFCILLIN\NAFCILLIN SODIUM
     Indication: SEPTIC ARTHRITIS STAPHYLOCOCCAL
     Dosage: UNK
     Route: 042

REACTIONS (13)
  - Peripheral swelling [Recovered/Resolved]
  - Hypersensitivity vasculitis [Recovered/Resolved]
  - Haematochezia [Recovered/Resolved]
  - Cutaneous vasculitis [Recovered/Resolved]
  - Rash [Recovered/Resolved]
  - Palpable purpura [Recovered/Resolved]
  - Abdominal distension [Recovered/Resolved]
  - Skin lesion [Recovered/Resolved]
  - Duodenal ulcer [Recovered/Resolved]
  - Swelling [Recovered/Resolved]
  - Vomiting [Recovered/Resolved]
  - Nausea [Recovered/Resolved]
  - Petechiae [Recovered/Resolved]
